FAERS Safety Report 16745148 (Version 2)
Quarter: 2019Q4

REPORT INFORMATION
  Report Type: Spontaneous
  Country: US (occurrence: US)
  Receive Date: 20190827
  Receipt Date: 20191007
  Transmission Date: 20200122
  Serious: No
  Sender: FDA-Public Use
  Company Number: US-PFIZER INC-2017161862

PATIENT
  Age: 31 Year
  Sex: Female

DRUGS (3)
  1. SKELAXIN [Suspect]
     Active Substance: METAXALONE
     Indication: NECK PAIN
  2. SKELAXIN [Suspect]
     Active Substance: METAXALONE
     Indication: FIBROMYALGIA
  3. SKELAXIN [Suspect]
     Active Substance: METAXALONE
     Indication: MUSCLE SPASMS
     Dosage: 800 MG, AS NEEDED (1 TABLET TWICE DAILY)
     Route: 048

REACTIONS (5)
  - Upper-airway cough syndrome [Unknown]
  - Weight fluctuation [Unknown]
  - Drug ineffective [Unknown]
  - Cough [Unknown]
  - Fatigue [Unknown]
